FAERS Safety Report 9353169 (Version 1)
Quarter: 2013Q2

REPORT INFORMATION
  Report Type: Not Available
  Country: NL (occurrence: NL)
  Receive Date: 20130618
  Receipt Date: 20130618
  Transmission Date: 20140414
  Serious: Yes (Hospitalization)
  Sender: FDA-Public Use
  Company Number: NL-ASTELLAS-2013EU005084

PATIENT
  Age: 48 Year
  Sex: Male
  Weight: 80 kg

DRUGS (4)
  1. VESICARE [Suspect]
     Indication: POLLAKIURIA
     Dosage: 5 MG, UID/QD
     Route: 065
     Dates: start: 20120301, end: 20120901
  2. SALBUTAMOL [Concomitant]
     Dosage: UNK
     Route: 065
  3. SALMETEROL [Concomitant]
     Dosage: UNK
     Route: 065
  4. TAMSULOSIN [Concomitant]
     Dosage: UNK
     Route: 065

REACTIONS (1)
  - Dyspnoea [Recovered/Resolved]
